FAERS Safety Report 15560938 (Version 1)
Quarter: 2018Q4

REPORT INFORMATION
  Report Type: Spontaneous
  Country: US (occurrence: US)
  Receive Date: 20181029
  Receipt Date: 20181029
  Transmission Date: 20190205
  Serious: No
  Sender: FDA-Public Use
  Company Number: US-PFIZER INC-2018428538

PATIENT
  Age: 73 Year
  Sex: Male
  Weight: 81.63 kg

DRUGS (3)
  1. SILDENAFIL CITRATE. [Suspect]
     Active Substance: SILDENAFIL CITRATE
     Indication: ERECTILE DYSFUNCTION
     Dosage: 1/3 OF A 100MG TABLET SO ABOUT 30MG / HALF OF A 100 MG PILL
     Route: 048
     Dates: start: 20181010
  2. FELODIPINE. [Concomitant]
     Active Substance: FELODIPINE
     Indication: HYPERTENSION
     Dosage: UNK UNK, 2X/DAY (2 AND A HALF, IT^S 5 ALL DAY, EVERY 24 HOURS)
  3. ATENOLOL. [Concomitant]
     Active Substance: ATENOLOL
     Indication: HYPERTENSION
     Dosage: 25 MG, 1X/DAY AT NIGHT
     Route: 048

REACTIONS (2)
  - Flushing [Recovered/Resolved]
  - Intentional product misuse [Unknown]

NARRATIVE: CASE EVENT DATE: 20181017
